FAERS Safety Report 6800737-0 (Version None)
Quarter: 2010Q2

REPORT INFORMATION
  Report Type: 
  Country: None (occurrence: None)
  Receive Date: 20100629
  Receipt Date: 20100615
  Transmission Date: 20101027
  Serious: Yes (Hospitalization, Other)
  Sender: FDA-Public Use
  Company Number: GB-RANBAXY-2010RR-35158

PATIENT
  Age: 66 Year
  Sex: Male
  Weight: 109.4 kg

DRUGS (25)
  1. AMPICILLIN SODIUM/SULBACTAM SODIUM [Suspect]
     Indication: WOUND INFECTION
     Dosage: 625 UG, TID
     Route: 048
     Dates: start: 20090902, end: 20090908
  2. AMPICILLIN SODIUM/SULBACTAM SODIUM [Suspect]
     Dosage: 1.2 G, TID
     Route: 042
     Dates: start: 20090908, end: 20090915
  3. AMIODARONE HCL [Concomitant]
     Indication: ATRIAL FIBRILLATION
     Dosage: 200 MG, UNK
     Route: 048
     Dates: start: 20090730, end: 20090823
  4. ASPIRIN [Concomitant]
     Indication: CORONARY ARTERY DISEASE
     Dosage: 75 MG, QD
     Route: 048
     Dates: start: 20090727, end: 20090823
  5. ATORVASTATIN CALCIUM [Concomitant]
     Indication: HYPERCHOLESTEROLAEMIA
     Dosage: 80 MG, UNK
     Route: 048
     Dates: start: 20090727, end: 20090908
  6. BISOPROLOL [Concomitant]
     Indication: HYPERTENSION
     Dosage: 1.25 MG, QD
     Route: 048
     Dates: start: 20090902, end: 20091007
  7. CEFUROXIME [Concomitant]
     Indication: ANTIBIOTIC PROPHYLAXIS
     Dosage: 750 MG, TID
     Route: 042
     Dates: start: 20090728, end: 20090731
  8. AMPICILLIN SODIUM/SULBACTAM SODIUM [Concomitant]
     Dosage: 625 UG, TID
     Route: 048
     Dates: start: 20090915, end: 20090925
  9. DIHYDROCODEINE BITARTRATE INJ [Concomitant]
     Indication: PAIN
     Dosage: 30 MG, QID
     Route: 048
     Dates: start: 20090731, end: 20090924
  10. FRUMIL [Concomitant]
     Indication: HYPERTENSION
     Dosage: 1 DF, QD
     Route: 048
     Dates: start: 20090905, end: 20091007
  11. FRUMIL [Concomitant]
     Indication: HYPOKALAEMIA
  12. HEPARIN [Concomitant]
     Dosage: UNK
     Route: 042
     Dates: start: 20090825, end: 20090902
  13. INDAPAMIDE [Concomitant]
     Indication: HYPERTENSION
     Dosage: 2.5 MG, QD
     Route: 048
     Dates: start: 20090727, end: 20090823
  14. LANSOPRAZOLE [Concomitant]
     Indication: GASTRIC DISORDER
     Dosage: 30 MG, QD
     Route: 048
     Dates: start: 20090827, end: 20091007
  15. MEROPENEM [Concomitant]
     Indication: WOUND INFECTION
     Dosage: 1 G, TID
     Route: 042
     Dates: start: 20090906, end: 20090907
  16. MINIHEP [Concomitant]
     Indication: THROMBOSIS PROPHYLAXIS
     Dosage: 5000 IU, TID
     Route: 058
     Dates: start: 20090729, end: 20090803
  17. PANTOPRAZOLE [Concomitant]
     Indication: GASTRIC DISORDER
     Dosage: 8 MG, UNK
     Route: 042
     Dates: start: 20090824, end: 20090826
  18. ACETAMINOPHEN [Concomitant]
     Indication: PROCEDURAL PAIN
     Dosage: 1 G, QID
     Route: 048
     Dates: start: 20090728, end: 20091007
  19. POTASSIUM CHLORIDE [Concomitant]
     Indication: HYPOKALAEMIA
     Dosage: 20 MMOL, QID
     Route: 048
     Dates: start: 20090802, end: 20090805
  20. SANDO-K [Concomitant]
     Indication: HYPOKALAEMIA
     Dosage: 2 DF, TID
     Route: 048
     Dates: start: 20090829, end: 20090903
  21. SUCRALFATE [Concomitant]
     Indication: ABDOMINAL DISTENSION
     Dosage: 1 G, TID
     Route: 048
     Dates: start: 20090824
  22. SUCRALFATE [Concomitant]
     Indication: NAUSEA
  23. TAZOCIN [Concomitant]
     Indication: WOUND INFECTION
     Dosage: 4.5 MG, UNK
     Route: 042
     Dates: start: 20090824, end: 20090902
  24. TEMAZEPAM [Concomitant]
     Indication: INSOMNIA
     Dosage: 10 MG, PRN
     Route: 048
     Dates: start: 20090902, end: 20090925
  25. WARFARIN [Concomitant]
     Dosage: UNK
     Route: 048
     Dates: start: 20090729

REACTIONS (3)
  - INTERNATIONAL NORMALISED RATIO INCREASED [None]
  - JAUNDICE [None]
  - LIVER FUNCTION TEST ABNORMAL [None]
